FAERS Safety Report 6796299-7 (Version None)
Quarter: 2010Q2

REPORT INFORMATION
  Report Type: 
  Country: None (occurrence: None)
  Receive Date: 20100624
  Receipt Date: 20100624
  Transmission Date: 20101027
  Serious: Yes (Life-Threatening)
  Sender: FDA-Public Use
  Company Number: None

PATIENT
  Age: 84 Year
  Sex: Female
  Weight: 59.8748 kg

DRUGS (1)
  1. LOSARTAN POTASSIUM 50MG. SANDOZ/MERCK [Suspect]
     Indication: HYPERTENSION
     Dosage: 50MG. TWICE DAILY PO
     Route: 048
     Dates: start: 20100601, end: 20100613

REACTIONS (10)
  - ASTHENIA [None]
  - BACK PAIN [None]
  - BALANCE DISORDER [None]
  - DIZZINESS [None]
  - DRUG EFFECT DECREASED [None]
  - DYSPNOEA [None]
  - GENERAL PHYSICAL HEALTH DETERIORATION [None]
  - OEDEMA PERIPHERAL [None]
  - PRODUCT SUBSTITUTION ISSUE [None]
  - SENSATION OF HEAVINESS [None]
